FAERS Safety Report 12774137 (Version 2)
Quarter: 2017Q1

REPORT INFORMATION
  Report Type: Spontaneous
  Country: CO (occurrence: VE)
  Receive Date: 20160923
  Receipt Date: 20170203
  Transmission Date: 20170428
  Serious: Yes (Other)
  Sender: FDA-Public Use
  Company Number: CO-AMGEN-VENSP2016129400

PATIENT
  Age: 59 Year
  Sex: Female

DRUGS (8)
  1. ENBREL [Suspect]
     Active Substance: ETANERCEPT
     Indication: RHEUMATOID ARTHRITIS
     Dosage: 50 MG, WEEKLY
     Route: 058
     Dates: start: 2011, end: 201607
  2. PARACETAMOL [Concomitant]
     Active Substance: ACETAMINOPHEN
     Dosage: UNK
  3. FOLIC ACID. [Concomitant]
     Active Substance: FOLIC ACID
  4. PREDNISOLONE. [Concomitant]
     Active Substance: PREDNISOLONE
  5. METHOTREXATE. [Suspect]
     Active Substance: METHOTREXATE
     Dosage: 4 DF, WEEKLY (2 DF ON WEDNESDAY AND 2 DF ON THURSDAY)
     Route: 065
     Dates: start: 20161006
  6. ENBREL [Suspect]
     Active Substance: ETANERCEPT
     Dosage: 50 MG, WEEKLY
     Route: 058
     Dates: start: 20161006
  7. METHOTREXATE. [Suspect]
     Active Substance: METHOTREXATE
     Indication: RHEUMATOID ARTHRITIS
     Dosage: 3 DF, 2X/WEEK (3 DF ON WEDNESDAYS AND 3 DF ON THURSDAYS)
     Route: 048
     Dates: start: 2011
  8. HYDROCODONE BITARTRATE AND ACETAMINOPHEN [Concomitant]
     Active Substance: ACETAMINOPHEN\HYDROCODONE BITARTRATE

REACTIONS (4)
  - Abasia [Not Recovered/Not Resolved]
  - Critical illness [Not Recovered/Not Resolved]
  - Device dislocation [Not Recovered/Not Resolved]
  - Arthralgia [Not Recovered/Not Resolved]

NARRATIVE: CASE EVENT DATE: 2015
